FAERS Safety Report 8115427-4 (Version None)
Quarter: 2012Q1

REPORT INFORMATION
  Report Type: 
  Country: None (occurrence: None)
  Receive Date: 20120206
  Receipt Date: 20120124
  Transmission Date: 20120608
  Serious: Yes (Hospitalization)
  Sender: FDA-Public Use
  Company Number: SE-ELI_LILLY_AND_COMPANY-SE201111008438

PATIENT
  Sex: Female

DRUGS (4)
  1. LITHIONIT [Concomitant]
     Indication: BIPOLAR DISORDER
     Dosage: 2 DF, BID
     Route: 048
     Dates: end: 20111112
  2. SEROQUEL [Concomitant]
     Dosage: 100 MG, QD
     Route: 048
     Dates: end: 20111112
  3. SEROQUEL [Concomitant]
     Indication: BIPOLAR DISORDER
     Dosage: 300 MG, QD
     Route: 048
     Dates: end: 20111112
  4. ZYPREXA [Suspect]
     Indication: BIPOLAR DISORDER
     Dosage: 10 MG, QD
     Route: 048
     Dates: end: 20111112

REACTIONS (5)
  - HYPERTENSION [None]
  - LIP AND/OR ORAL CAVITY CANCER [None]
  - PNEUMONIA [None]
  - MULTIPLE SCLEROSIS [None]
  - EMPYEMA [None]
